FAERS Safety Report 6051335-0 (Version None)
Quarter: 2009Q1

REPORT INFORMATION
  Report Type: 
  Country: None (occurrence: None)
  Receive Date: 20090121
  Receipt Date: 20090121
  Transmission Date: 20090719
  Serious: No
  Sender: FDA-Public Use
  Company Number: None

PATIENT
  Age: 34 Year
  Sex: Female
  Weight: 56.6996 kg

DRUGS (1)
  1. KENALOG [Suspect]
     Indication: SINUSITIS
     Dates: start: 20081109, end: 20081109

REACTIONS (5)
  - BACK PAIN [None]
  - HIP DEFORMITY [None]
  - INJECTION SITE PAIN [None]
  - INJECTION SITE REACTION [None]
  - SKIN DISORDER [None]
